FAERS Safety Report 5146799-0 (Version None)
Quarter: 2006Q4

REPORT INFORMATION
  Report Type: 
  Country: None (occurrence: None)
  Receive Date: 20061102
  Receipt Date: 20061020
  Transmission Date: 20070319
  Serious: Yes (Hospitalization)
  Sender: FDA-Public Use
  Company Number: 2006PV023607

PATIENT
  Age: 56 Year
  Sex: Male
  Weight: 131.5431 kg

DRUGS (6)
  1. BYETTA [Suspect]
     Indication: DIABETES MELLITUS NON-INSULIN-DEPENDENT
     Dosage: 10 MCG; BID; SC
     Route: 058
     Dates: start: 20060501
  2. ACTOS [Concomitant]
  3. NOVOLOG [Concomitant]
  4. NPH INSULIN [Concomitant]
  5. DIGITEK [Concomitant]
  6. COREG [Concomitant]

REACTIONS (5)
  - ATRIAL FIBRILLATION [None]
  - CARDIAC FAILURE [None]
  - CONDITION AGGRAVATED [None]
  - DECREASED APPETITE [None]
  - WEIGHT DECREASED [None]
